FAERS Safety Report 20001855 (Version 1)
Quarter: 2021Q4

REPORT INFORMATION
  Report Type: Spontaneous
  Country: US (occurrence: US)
  Receive Date: 20211027
  Receipt Date: 20211027
  Transmission Date: 20220303
  Serious: No
  Sender: FDA-Public Use
  Company Number: None

PATIENT
  Age: 76 Year
  Sex: Male
  Weight: 87 kg

DRUGS (1)
  1. PIPERACILLIN SODIUM\TAZOBACTAM SODIUM [Suspect]
     Active Substance: PIPERACILLIN SODIUM\TAZOBACTAM SODIUM
     Indication: Urinary tract infection
     Dosage: ?          OTHER STRENGTH:3GM, 0.375GM/50ML;
     Route: 042
     Dates: start: 20200405, end: 20200405

REACTIONS (1)
  - Toxic skin eruption [None]

NARRATIVE: CASE EVENT DATE: 20200306
